FAERS Safety Report 14548115 (Version 5)
Quarter: 2018Q1

REPORT INFORMATION
  Report Type: Report from Study
  Country: HU (occurrence: HU)
  Receive Date: 20180219
  Receipt Date: 20180307
  Transmission Date: 20180509
  Serious: Yes (Other)
  Sender: FDA-Public Use
  Company Number: HU-PFIZER INC-2017451051

PATIENT
  Age: 76 Year
  Sex: Female
  Weight: 64 kg

DRUGS (8)
  1. TANYDON [Concomitant]
     Dosage: UNK
  2. PANTOPRAZOLE [Suspect]
     Active Substance: PANTOPRAZOLE
     Dosage: UNK
  3. ULTIBRO BREEZHALER [Suspect]
     Active Substance: GLYCOPYRRONIUM\INDACATEROL
     Indication: CHRONIC OBSTRUCTIVE PULMONARY DISEASE
     Dosage: 1 DF, QD
     Route: 055
     Dates: start: 20170920
  4. VENTOLIN [Concomitant]
     Active Substance: ALBUTEROL SULFATE
     Indication: CHRONIC OBSTRUCTIVE PULMONARY DISEASE
     Dosage: UNK
     Dates: start: 20170920
  5. MODUXIN [Concomitant]
     Dosage: UNK
  6. CAVINTON [Concomitant]
     Active Substance: VINPOCETINE
     Dosage: UNK
  7. ACETYLSALICYLIC ACID [Suspect]
     Active Substance: ASPIRIN
     Dosage: UNK
     Route: 065
  8. LAPIDEN [Concomitant]
     Active Substance: INDAPAMIDE
     Dosage: UNK

REACTIONS (6)
  - Diarrhoea [Recovered/Resolved]
  - Myocardial ischaemia [Unknown]
  - Mobility decreased [Unknown]
  - Urinary tract infection bacterial [Unknown]
  - Dyspnoea exertional [Unknown]
  - Peripheral artery occlusion [Unknown]

NARRATIVE: CASE EVENT DATE: 2000
